FAERS Safety Report 4308982-3 (Version None)
Quarter: 2004Q1

REPORT INFORMATION
  Report Type: 
  Country: None (occurrence: None)
  Receive Date: 20040227
  Receipt Date: 20040220
  Transmission Date: 20041129
  Serious: Yes (Life-Threatening, Other)
  Sender: FDA-Public Use
  Company Number: 2004200515GB

PATIENT
  Age: 54 Year
  Sex: Female

DRUGS (2)
  1. CLINDAMYCIN HCL [Suspect]
     Indication: PROPHYLAXIS
     Dosage: 600 MG, SINGLE, ORAL
     Route: 048
     Dates: start: 20040209, end: 20040209
  2. WARFARIN SODIUM [Suspect]
     Indication: HEART VALVE REPLACEMENT
     Dosage: 10 MG, QD, ORAL
     Route: 048
     Dates: start: 20020601

REACTIONS (2)
  - INTERNATIONAL NORMALISED RATIO INCREASED [None]
  - STRESS SYMPTOMS [None]
